FAERS Safety Report 21596417 (Version 1)
Quarter: 2022Q4

REPORT INFORMATION
  Report Type: Spontaneous
  Country: US (occurrence: US)
  Receive Date: 20221115
  Receipt Date: 20221115
  Transmission Date: 20230113
  Serious: Yes (Other)
  Sender: FDA-Public Use
  Company Number: US-LUNDBECK-DKLU3054612

PATIENT
  Age: 8 Year
  Sex: Male

DRUGS (3)
  1. SABRIL [Suspect]
     Active Substance: VIGABATRIN
     Indication: Partial seizures
     Route: 048
     Dates: start: 201607
  2. SABRIL [Suspect]
     Active Substance: VIGABATRIN
     Indication: Idiopathic partial epilepsy
  3. SABRIL [Suspect]
     Active Substance: VIGABATRIN
     Indication: Seizure

REACTIONS (1)
  - Seizure [Unknown]

NARRATIVE: CASE EVENT DATE: 20221104
